FAERS Safety Report 5042641-7 (Version None)
Quarter: 2006Q3

REPORT INFORMATION
  Report Type: 
  Country: None (occurrence: None)
  Receive Date: 20060705
  Receipt Date: 20060626
  Transmission Date: 20061208
  Serious: Yes (Other)
  Sender: FDA-Public Use
  Company Number: PHBS2006BR09675

PATIENT
  Age: 19 Year
  Sex: Female
  Weight: 47 kg

DRUGS (1)
  1. RITALIN [Suspect]
     Indication: ATTENTION DEFICIT/HYPERACTIVITY DISORDER
     Dosage: 10 MG, BID
     Route: 048
     Dates: start: 20060622

REACTIONS (3)
  - DIZZINESS [None]
  - HYPOAESTHESIA [None]
  - NAUSEA [None]
